FAERS Safety Report 4979546-3 (Version None)
Quarter: 2006Q2

REPORT INFORMATION
  Report Type: 
  Country: None (occurrence: None)
  Receive Date: 20060421
  Receipt Date: 20060412
  Transmission Date: 20061013
  Serious: Yes (Other)
  Sender: FDA-Public Use
  Company Number: US-ROCHE-444288

PATIENT
  Sex: Male

DRUGS (1)
  1. ROCEPHIN [Suspect]
     Indication: EAR INFECTION
     Dosage: REPORTED AS A 'SHOT'
     Route: 065

REACTIONS (1)
  - AUTISM [None]
